FAERS Safety Report 17913016 (Version 1)
Quarter: 2020Q2

REPORT INFORMATION
  Report Type: Report from Study
  Country: US (occurrence: US)
  Receive Date: 20200618
  Receipt Date: 20200618
  Transmission Date: 20200714
  Serious: Yes (Hospitalization)
  Sender: FDA-Public Use
  Company Number: US-BAUSCH-BL-2020-013626

PATIENT
  Age: 42 Year
  Sex: Female

DRUGS (1)
  1. XIFAXAN [Suspect]
     Active Substance: RIFAXIMIN
     Indication: HEPATIC ENCEPHALOPATHY
     Dosage: WAS ON XIFAXAN FOR AT LEAST A YEAR
     Route: 048

REACTIONS (5)
  - Hospitalisation [Unknown]
  - Abdominal pain [Recovered/Resolved]
  - Alcohol withdrawal syndrome [Recovered/Resolved]
  - Hepatic encephalopathy [Recovered/Resolved]
  - Treatment noncompliance [Unknown]
